FAERS Safety Report 17652414 (Version 1)
Quarter: 2020Q2

REPORT INFORMATION
  Report Type: Spontaneous
  Country: FR (occurrence: FR)
  Receive Date: 20200409
  Receipt Date: 20200409
  Transmission Date: 20200713
  Serious: Yes (Other)
  Sender: FDA-Public Use
  Company Number: FR-TEVA-2020-FR-1221736

PATIENT
  Age: 70 Year
  Sex: Male
  Weight: 81 kg

DRUGS (5)
  1. PRAVASTATINE ACTAVIS 20 MG, COMPRIME [Concomitant]
  2. ZOLMITRIPTAN EG 2,5 MG, COMPRIME ORODISPERSIBLE [Concomitant]
  3. THYROFIX 100 MICROGRAMMES, COMPRIME SECABLE [Concomitant]
  4. ESOMEPRAZOLE ARROW 20 MG, COMPRIME GASTRO-RESISTANT [Concomitant]
  5. SILDENAFIL. [Suspect]
     Active Substance: SILDENAFIL
     Indication: ERECTILE DYSFUNCTION
     Dosage: 1 DOSAGE FORM
     Route: 048
     Dates: start: 20191219, end: 20191219

REACTIONS (1)
  - Anterograde amnesia [Recovered/Resolved]

NARRATIVE: CASE EVENT DATE: 20191219
